FAERS Safety Report 8132256-6 (Version None)
Quarter: 2012Q1

REPORT INFORMATION
  Report Type: 
  Country: None (occurrence: None)
  Receive Date: 20120208
  Receipt Date: 20120127
  Transmission Date: 20120608
  Serious: Yes (Other)
  Sender: FDA-Public Use
  Company Number: 2012SP000033

PATIENT
  Sex: Female
  Weight: 56 kg

DRUGS (4)
  1. MAGNESIUM OXIDE [Concomitant]
  2. PEGINTERFERON ALFA-2B [Suspect]
     Indication: PRODUCT USED FOR UNKNOWN INDICATION
  3. RIBAVIRIN [Suspect]
     Indication: PRODUCT USED FOR UNKNOWN INDICATION
  4. PEG-INTRON [Suspect]
     Indication: PRODUCT USED FOR UNKNOWN INDICATION

REACTIONS (4)
  - UNINTENDED PREGNANCY [None]
  - ABORTION INDUCED [None]
  - TREATMENT NONCOMPLIANCE [None]
  - MATERNAL EXPOSURE DURING PREGNANCY [None]
